FAERS Safety Report 5705115-3 (Version None)
Quarter: 2008Q2

REPORT INFORMATION
  Report Type: 
  Country: None (occurrence: None)
  Receive Date: 20080410
  Receipt Date: 20080402
  Transmission Date: 20081010
  Serious: Yes (Other)
  Sender: FDA-Public Use
  Company Number: 2008AP000792

PATIENT
  Age: 58 Year
  Sex: Female

DRUGS (3)
  1. FLUVOXAMINE MALEATE [Suspect]
     Indication: ANXIETY
     Dosage: 100 MG;QD;PO
     Route: 048
     Dates: start: 20030101
  2. FLUVOXAMINE MALEATE [Suspect]
     Indication: DEPRESSION
     Dosage: 100 MG;QD;PO
     Route: 048
     Dates: start: 20030101
  3. FLUVOXAMINE MALEATE [Suspect]
     Indication: OBSESSIVE-COMPULSIVE DISORDER
     Dosage: 100 MG;QD;PO
     Route: 048
     Dates: start: 20030101

REACTIONS (1)
  - EYE HAEMORRHAGE [None]
